FAERS Safety Report 8608103-2 (Version None)
Quarter: 2012Q3

REPORT INFORMATION
  Report Type: 
  Country: None (occurrence: None)
  Receive Date: 20120821
  Receipt Date: 20120815
  Transmission Date: 20120928
  Serious: Yes (Hospitalization, Other)
  Sender: FDA-Public Use
  Company Number: PHHY2012BR049915

PATIENT
  Sex: Female

DRUGS (10)
  1. CLOPIDEGREL [Concomitant]
     Indication: CORONARY ARTERY DISEASE
     Dosage: 1 DF, DAILY
     Route: 048
  2. ATENOLOL [Concomitant]
     Indication: BLOOD PRESSURE ABNORMAL
     Dosage: 2 DF, (2 TABLET) DAILY
     Route: 048
  3. LEVOFLOXACIN [Concomitant]
     Indication: URINARY TRACT INFECTION
     Dosage: 1 DF, DAILY
     Route: 048
  4. DIOVAN [Suspect]
     Indication: BLOOD PRESSURE ABNORMAL
     Dosage: 320 MG, UNK
  5. ASPIRIN [Concomitant]
     Indication: PERIPHERAL VASCULAR DISORDER
     Dosage: 1 DF, DAILY
     Route: 048
  6. GLYBURIDE [Concomitant]
     Dosage: 2 DF, DAILY
     Route: 048
  7. ALLOPURINOL [Concomitant]
     Indication: BLOOD URIC ACID ABNORMAL
     Dosage: 1 DF, DAILY
     Route: 048
  8. CIPROFIBRATE [Concomitant]
     Dosage: 1 DF, DAILY
     Route: 048
  9. AMLODIPINE [Concomitant]
     Indication: BLOOD PRESSURE ABNORMAL
     Dosage: 1 DF, DAILY
     Route: 048
  10. FUROSEMIDE [Concomitant]
     Indication: POLYURIA
     Dosage: 1 DF, DAILY
     Route: 048

REACTIONS (3)
  - INFARCTION [None]
  - CEREBROVASCULAR ACCIDENT [None]
  - URINARY TRACT INFECTION [None]
